FAERS Safety Report 6959357-X (Version None)
Quarter: 2010Q3

REPORT INFORMATION
  Report Type: 
  Country: None (occurrence: None)
  Receive Date: 20100831
  Receipt Date: 20100831
  Transmission Date: 20110219
  Serious: Yes (Life-Threatening, Other)
  Sender: FDA-Public Use
  Company Number: None

PATIENT
  Age: 21 Year
  Sex: Female
  Weight: 82.1011 kg

DRUGS (1)
  1. METOCLOPRAMIDE HYDROCHLORIDE [Suspect]
     Indication: IMPAIRED GASTRIC EMPTYING
     Dosage: 10 MG TAKE WITH MEALS PO
     Route: 048
     Dates: start: 20091030, end: 20100515

REACTIONS (3)
  - ANXIETY [None]
  - DEPRESSION [None]
  - PANIC ATTACK [None]
